FAERS Safety Report 20665821 (Version 1)
Quarter: 2022Q2

REPORT INFORMATION
  Report Type: Spontaneous
  Country: US (occurrence: US)
  Receive Date: 20220402
  Receipt Date: 20220402
  Transmission Date: 20220721
  Serious: Yes (Hospitalization)
  Sender: FDA-Public Use
  Company Number: US-BRISTOL-MYERS SQUIBB COMPANY-2022-010214

PATIENT
  Age: 92 Year
  Sex: Male

DRUGS (1)
  1. REVLIMID [Suspect]
     Active Substance: LENALIDOMIDE
     Indication: Chronic myelomonocytic leukaemia
     Route: 048
     Dates: start: 20220226

REACTIONS (5)
  - Dehydration [Unknown]
  - Diarrhoea [Unknown]
  - Hypotension [Unknown]
  - Oxygen saturation decreased [Unknown]
  - Intentional product use issue [Unknown]

NARRATIVE: CASE EVENT DATE: 20220101
